FAERS Safety Report 6992847-2 (Version None)
Quarter: 2010Q3

REPORT INFORMATION
  Report Type: 
  Country: None (occurrence: None)
  Receive Date: 20100917
  Receipt Date: 20100908
  Transmission Date: 20110219
  Serious: Yes (Hospitalization)
  Sender: FDA-Public Use
  Company Number: B0430319A

PATIENT
  Sex: Male
  Weight: 79 kg

DRUGS (1)
  1. GW786034 [Suspect]
     Indication: SARCOMA
     Dosage: 400MG PER DAY
     Route: 048
     Dates: start: 20060527

REACTIONS (3)
  - ASTHENIA [None]
  - OEDEMA PERIPHERAL [None]
  - PERFORMANCE STATUS DECREASED [None]
